FAERS Safety Report 12787680 (Version 1)
Quarter: 2016Q3

REPORT INFORMATION
  Report Type: Report from Study
  Country: US (occurrence: US)
  Receive Date: 20160928
  Receipt Date: 20160928
  Transmission Date: 20161109
  Serious: Yes (Hospitalization)
  Sender: FDA-Public Use
  Company Number: US-ROCHE-1633757

PATIENT
  Age: 63 Year
  Sex: Male
  Weight: 55.8 kg

DRUGS (37)
  1. ATEZOLIZUMAB [Suspect]
     Active Substance: ATEZOLIZUMAB
     Indication: NEOPLASM
     Dosage: MOST RECENT DOSE WAS ADMINISTERED ON 03/SEP/2015 AT 1200 MG.
     Route: 042
     Dates: start: 20150714
  2. ATIVAN [Concomitant]
     Active Substance: LORAZEPAM
     Indication: INSOMNIA
     Route: 048
     Dates: start: 20150911, end: 20150916
  3. ZOSYN [Concomitant]
     Active Substance: PIPERACILLIN SODIUM\TAZOBACTAM SODIUM
     Indication: LUNG INFECTION
     Route: 042
     Dates: start: 20150911, end: 20150913
  4. OMNIPAQUE [Concomitant]
     Active Substance: IOHEXOL
     Indication: PROPHYLAXIS
     Route: 048
     Dates: start: 20150624
  5. DELTASONE [Concomitant]
     Active Substance: PREDNISONE
     Indication: HYPERNATRAEMIA
     Route: 048
     Dates: start: 20150916, end: 20150916
  6. BEVACIZUMAB [Suspect]
     Active Substance: BEVACIZUMAB
     Indication: NEOPLASM
     Dosage: MOST RECENT DOSE WAS ADMINISTERED ON 03/SEP/2015 AT 770 MG.
     Route: 042
     Dates: start: 20150714
  7. NORVASC [Concomitant]
     Active Substance: AMLODIPINE BESYLATE
     Indication: HYPERTENSION
     Route: 048
     Dates: start: 20150224, end: 20150913
  8. HYDRODIURIL [Concomitant]
     Active Substance: HYDROCHLOROTHIAZIDE
     Indication: HYPERTENSION
     Route: 048
     Dates: start: 20150602, end: 20150916
  9. AVELOX [Concomitant]
     Active Substance: MOXIFLOXACIN HYDROCHLORIDE
     Indication: LUNG INFECTION
     Route: 048
     Dates: start: 20150911, end: 20150911
  10. INSULIN HUMAN [Concomitant]
     Active Substance: INSULIN HUMAN
     Indication: LUNG INFECTION
     Route: 058
     Dates: start: 20150911, end: 20150916
  11. SODIUM CHLORIDE. [Concomitant]
     Active Substance: SODIUM CHLORIDE
     Route: 065
     Dates: start: 20150914, end: 20150916
  12. PREDNISONE. [Concomitant]
     Active Substance: PREDNISONE
     Indication: HYPONATRAEMIA
     Route: 065
     Dates: start: 20150813, end: 20150813
  13. HEPARIN FLUSH [Concomitant]
     Active Substance: HEPARIN SODIUM
     Route: 065
     Dates: start: 20150829, end: 20150916
  14. HEPARIN FLUSH [Concomitant]
     Active Substance: HEPARIN SODIUM
     Route: 065
     Dates: start: 20150913, end: 20150916
  15. ZOFRAN [Concomitant]
     Active Substance: ONDANSETRON HYDROCHLORIDE
     Indication: NAUSEA
     Route: 065
     Dates: start: 20150911, end: 20150916
  16. NIZORAL [Concomitant]
     Active Substance: KETOCONAZOLE
     Indication: GENITAL RASH
     Route: 061
     Dates: start: 20150911, end: 20150916
  17. 50% DEXTROSE [Concomitant]
     Route: 042
     Dates: start: 20150911, end: 20150913
  18. LOPRESSOR [Concomitant]
     Active Substance: METOPROLOL TARTRATE
     Indication: CARDIAC FAILURE CONGESTIVE
     Route: 048
     Dates: start: 20150913, end: 20150925
  19. HEPARIN FLUSH [Concomitant]
     Active Substance: HEPARIN SODIUM
     Route: 065
     Dates: start: 20150914, end: 20150916
  20. CODEINE/GUAIFENESIN [Concomitant]
     Active Substance: CODEINE\GUAIFENESIN
     Indication: COUGH
     Route: 048
     Dates: start: 20150910, end: 20150916
  21. ZOFRAN [Concomitant]
     Active Substance: ONDANSETRON HYDROCHLORIDE
     Indication: VOMITING
  22. NIZORAL [Concomitant]
     Active Substance: KETOCONAZOLE
     Route: 061
     Dates: start: 20150903
  23. SOLU-MEDROL [Concomitant]
     Active Substance: METHYLPREDNISOLONE SODIUM SUCCINATE
     Route: 042
     Dates: start: 20150912, end: 20150915
  24. VANCOMYCIN [Concomitant]
     Active Substance: VANCOMYCIN
     Route: 042
     Dates: start: 20150911, end: 20150911
  25. VIBRAMYCIN [Concomitant]
     Active Substance: DOXYCYCLINE
     Indication: LUNG INFECTION
     Route: 042
     Dates: start: 20150911, end: 20150914
  26. SODIUM CHLORIDE. [Concomitant]
     Active Substance: SODIUM CHLORIDE
     Route: 042
     Dates: start: 20150717
  27. HOMATROPINE/HYDROCODONE [Concomitant]
     Indication: COUGH
     Route: 065
     Dates: start: 20150909, end: 20150919
  28. HYTONE [Concomitant]
     Active Substance: HYDROCORTISONE
     Route: 061
     Dates: start: 20150930
  29. SOLU-MEDROL [Concomitant]
     Active Substance: METHYLPREDNISOLONE SODIUM SUCCINATE
     Indication: GENITAL RASH
     Route: 042
     Dates: start: 20150911, end: 20150911
  30. PRINIVIL [Concomitant]
     Active Substance: LISINOPRIL
     Route: 048
     Dates: start: 20150913
  31. LOVENOX [Concomitant]
     Active Substance: ENOXAPARIN SODIUM
     Indication: LUNG INFECTION
     Route: 058
     Dates: start: 20150910, end: 20150916
  32. POTASSIUM CHLORIDE. [Concomitant]
     Active Substance: POTASSIUM CHLORIDE
     Indication: LUNG INFECTION
     Route: 042
     Dates: start: 20150911, end: 20150913
  33. HYTONE [Concomitant]
     Active Substance: HYDROCORTISONE
     Indication: GENITAL RASH
     Route: 061
     Dates: start: 20150911, end: 20150916
  34. GADAVIST [Concomitant]
     Active Substance: GADOBUTROL
     Route: 042
     Dates: start: 20150915, end: 20150915
  35. LUMIGAN [Concomitant]
     Active Substance: BIMATOPROST
     Indication: GLAUCOMA
     Dosage: ONE DROP OTIC
     Route: 065
  36. VANCOMYCIN [Concomitant]
     Active Substance: VANCOMYCIN
     Indication: LUNG INFECTION
     Route: 042
     Dates: start: 20150911, end: 20150914
  37. CEFTIN (UNITED STATES) [Concomitant]
     Indication: LUNG INFECTION
     Route: 048
     Dates: start: 20150914, end: 20150915

REACTIONS (2)
  - Respiratory failure [Recovering/Resolving]
  - Cardiac failure congestive [Recovering/Resolving]

NARRATIVE: CASE EVENT DATE: 20150910
